FAERS Safety Report 26115829 (Version 1)
Quarter: 2025Q4

REPORT INFORMATION
  Report Type: Spontaneous
  Country: EU (occurrence: EU)
  Receive Date: 20251203
  Receipt Date: 20251203
  Transmission Date: 20260118
  Serious: Yes (Hospitalization, Other)
  Sender: CELLTRION
  Company Number: EU-CELLTRION INC.-2025SI043549

PATIENT

DRUGS (2)
  1. INFLIXIMAB [Suspect]
     Active Substance: INFLIXIMAB
     Indication: Colitis ulcerative
     Dosage: HIGH-DOSE
     Route: 065
     Dates: start: 202405, end: 202411
  2. INFLIXIMAB [Suspect]
     Active Substance: INFLIXIMAB
     Indication: Proctitis

REACTIONS (2)
  - Colitis ulcerative [Recovered/Resolved]
  - Treatment failure [Unknown]

NARRATIVE: CASE EVENT DATE: 20241101
